FAERS Safety Report 9308360 (Version 1)
Quarter: 2013Q2

REPORT INFORMATION
  Report Type: Spontaneous
  Country: FR (occurrence: FR)
  Receive Date: 20130524
  Receipt Date: 20130524
  Transmission Date: 20140414
  Serious: Yes (Death)
  Sender: FDA-Public Use
  Company Number: FR-GLAXOSMITHKLINE-B0893200A

PATIENT
  Age: 48 Year
  Sex: Male
  Weight: 42 kg

DRUGS (9)
  1. DEROXAT [Suspect]
     Indication: PRODUCT USED FOR UNKNOWN INDICATION
     Dosage: 10MG SINGLE DOSE
     Route: 048
     Dates: start: 20130430, end: 20130430
  2. RISPERDAL [Suspect]
     Indication: PRODUCT USED FOR UNKNOWN INDICATION
     Dosage: 1MG SINGLE DOSE
     Route: 048
     Dates: start: 20130430, end: 20130430
  3. OMEPRAZOLE [Suspect]
     Indication: PRODUCT USED FOR UNKNOWN INDICATION
     Dosage: 20MG SINGLE DOSE
     Route: 048
     Dates: start: 20130430, end: 20130430
  4. DEPAKINE CHRONO [Suspect]
     Indication: PRODUCT USED FOR UNKNOWN INDICATION
     Dosage: 1000MG SINGLE DOSE
     Route: 048
     Dates: start: 20130430, end: 20130430
  5. TETRAZEPAM [Suspect]
     Indication: PRODUCT USED FOR UNKNOWN INDICATION
     Dosage: 25MG SINGLE DOSE
     Route: 048
     Dates: start: 20130430, end: 20130430
  6. MIOREL [Concomitant]
     Route: 065
  7. MOVICOL [Concomitant]
     Route: 065
  8. THIOCOLCHICOSIDE [Concomitant]
     Route: 065
  9. CLINUTREN [Concomitant]
     Route: 065

REACTIONS (5)
  - Cardiac arrest [Fatal]
  - Pallor [Not Recovered/Not Resolved]
  - Hypotonia [Not Recovered/Not Resolved]
  - Wrong drug administered [Fatal]
  - Medication error [Fatal]
